FAERS Safety Report 8056897-X (Version None)
Quarter: 2012Q1

REPORT INFORMATION
  Report Type: 
  Country: None (occurrence: None)
  Receive Date: 20120119
  Receipt Date: 20120116
  Transmission Date: 20120608
  Serious: Yes (Death, Other)
  Sender: FDA-Public Use
  Company Number: GB-B.I. PHARMACEUTICALS,INC./RIDGEFIELD-2011-UK-00940UK

PATIENT
  Age: 83 Year
  Sex: Male
  Weight: 120 kg

DRUGS (19)
  1. LOSARTAN POTASSIUM [Concomitant]
     Dosage: 25 MG
  2. MOVIPREP [Concomitant]
  3. TIOPRONIN [Concomitant]
     Route: 055
  4. AMLODIPINE [Concomitant]
     Dosage: 5 MG
  5. CARBOCISTEINE [Concomitant]
  6. TRAZODONE HYDROCHLORIDE [Concomitant]
     Dosage: 50 MG
  7. METFORMIN HYDROCHLORIDE [Concomitant]
     Dosage: 500 MG
  8. FUROSEMIDE [Concomitant]
     Dosage: 40 MG
  9. ALBUTEROL SULFATE AUTOHALER [Concomitant]
  10. ASPIRIN [Concomitant]
     Dosage: 75 MG
  11. CETIRIZINE HCL [Concomitant]
     Dosage: 10 MG
  12. DOXYCYCLINE HYCLATE [Concomitant]
     Dosage: 100 MG
  13. HUMALOG [Concomitant]
  14. ACETAMINOPHEN [Concomitant]
     Dosage: 500 MG
  15. TIOPRONIN [Suspect]
     Indication: CHRONIC OBSTRUCTIVE PULMONARY DISEASE
     Dosage: 5 MCG
     Route: 055
     Dates: start: 20110329, end: 20110610
  16. PREDNISOLONE [Concomitant]
     Dosage: 5 MG
  17. PHOLCODINE [Concomitant]
  18. SIMVASTATIN [Concomitant]
     Dosage: 10 MG
  19. FLUTICASONE PROPIONATE/SALMETEROL [Concomitant]

REACTIONS (1)
  - CHRONIC OBSTRUCTIVE PULMONARY DISEASE [None]
